FAERS Safety Report 9366398 (Version 1)
Quarter: 2013Q2

REPORT INFORMATION
  Report Type: Spontaneous
  Country: IE (occurrence: IE)
  Receive Date: 20130625
  Receipt Date: 20130625
  Transmission Date: 20140414
  Serious: Yes (Other)
  Sender: FDA-Public Use
  Company Number: IE-JNJFOC-20130613316

PATIENT
  Age: 59 Year
  Sex: Female

DRUGS (9)
  1. PALEXIA SR [Suspect]
     Indication: BACK PAIN
     Route: 048
  2. PALEXIA SR [Suspect]
     Indication: BACK PAIN
     Route: 048
  3. OXYNORM [Interacting]
     Indication: PRODUCT USED FOR UNKNOWN INDICATION
     Route: 048
  4. TARGIN [Concomitant]
     Indication: PRODUCT USED FOR UNKNOWN INDICATION
     Route: 048
  5. PREGABALIN [Concomitant]
     Indication: PRODUCT USED FOR UNKNOWN INDICATION
     Route: 048
  6. CYMBALTA [Concomitant]
     Indication: PRODUCT USED FOR UNKNOWN INDICATION
     Route: 048
  7. ZANAFLEX [Concomitant]
     Indication: PRODUCT USED FOR UNKNOWN INDICATION
     Route: 048
  8. GLUCOPHAGE [Concomitant]
     Indication: PRODUCT USED FOR UNKNOWN INDICATION
     Route: 065
  9. CYCLIMORPH [Concomitant]
     Indication: BREAKTHROUGH PAIN
     Route: 030

REACTIONS (4)
  - Hallucination [Not Recovered/Not Resolved]
  - Disorientation [Not Recovered/Not Resolved]
  - Drug interaction [Not Recovered/Not Resolved]
  - Wrong technique in drug usage process [Unknown]
